FAERS Safety Report 7359562-7 (Version None)
Quarter: 2011Q1

REPORT INFORMATION
  Report Type: 
  Country: None (occurrence: None)
  Receive Date: 20110317
  Receipt Date: 20100121
  Transmission Date: 20110831
  Serious: No
  Sender: FDA-Public Use
  Company Number: US-PFIZER INC-2010008945

PATIENT
  Sex: Female

DRUGS (6)
  1. POTASSIUM ACETATE [Suspect]
  2. COGENTIN [Suspect]
  3. LEVOXYL [Suspect]
  4. ATENOLOL [Suspect]
  5. TEGRETOL [Suspect]
  6. AMLODIPINE BESYLATE [Suspect]

REACTIONS (1)
  - DEPRESSION [None]
